FAERS Safety Report 5263073-2 (Version None)
Quarter: 2007Q1

REPORT INFORMATION
  Report Type: 
  Country: None (occurrence: None)
  Receive Date: 20070312
  Receipt Date: 20070228
  Transmission Date: 20070707
  Serious: Yes (Hospitalization, Other)
  Sender: FDA-Public Use
  Company Number: US-PFIZER INC-2006062428

PATIENT
  Sex: Female

DRUGS (4)
  1. NEURONTIN [Suspect]
     Indication: DIABETIC NEUROPATHY
     Dates: start: 20040212, end: 20040902
  2. NEURONTIN [Suspect]
     Indication: NEUROPATHY PERIPHERAL
  3. GABAPENTIN [Suspect]
     Indication: DIABETIC NEUROPATHY
     Dates: start: 20050324, end: 20050701
  4. EFFEXOR XR [Concomitant]

REACTIONS (6)
  - DEPRESSION [None]
  - DRUG INEFFECTIVE [None]
  - INTENTIONAL OVERDOSE [None]
  - MOOD ALTERED [None]
  - SUICIDAL IDEATION [None]
  - SUICIDE ATTEMPT [None]
